FAERS Safety Report 11432799 (Version 3)
Quarter: 2015Q3

REPORT INFORMATION
  Report Type: Spontaneous
  Country: JP (occurrence: JP)
  Receive Date: 20150828
  Receipt Date: 20150910
  Transmission Date: 20151125
  Serious: No
  Sender: FDA-Public Use
  Company Number: JP-009507513-1508JPN012371

PATIENT

DRUGS (1)
  1. DECADRON [Suspect]
     Active Substance: DEXAMETHASONE
     Dosage: UNK
     Route: 048

REACTIONS (1)
  - Purpura [Recovered/Resolved]
